FAERS Safety Report 16704509 (Version 3)
Quarter: 2019Q4

REPORT INFORMATION
  Report Type: Spontaneous
  Country: US (occurrence: US)
  Receive Date: 20190814
  Receipt Date: 20191024
  Transmission Date: 20200122
  Serious: No
  Sender: FDA-Public Use
  Company Number: US-ELI_LILLY_AND_COMPANY-US201908002565

PATIENT
  Sex: Female

DRUGS (2)
  1. FORTEO [Suspect]
     Active Substance: TERIPARATIDE
     Indication: OSTEOPOROSIS
     Dosage: UNK UNK, UNKNOWN
     Route: 065
     Dates: start: 201907
  2. FORTEO [Suspect]
     Active Substance: TERIPARATIDE
     Dosage: UNK UNK, UNKNOWN
     Route: 065

REACTIONS (14)
  - Stress [Unknown]
  - Product dose omission [Not Recovered/Not Resolved]
  - Fatigue [Unknown]
  - Myalgia [Unknown]
  - Back pain [Not Recovered/Not Resolved]
  - Bone pain [Unknown]
  - Blood calcium increased [Unknown]
  - Insomnia [Unknown]
  - Injection site pain [Recovered/Resolved]
  - Extra dose administered [Unknown]
  - Chest pain [Not Recovered/Not Resolved]
  - Pain [Unknown]
  - Muscle spasms [Unknown]
  - Heart rate increased [Recovering/Resolving]
